FAERS Safety Report 6367288-1 (Version None)
Quarter: 2009Q3

REPORT INFORMATION
  Report Type: 
  Country: None (occurrence: None)
  Receive Date: 20090921
  Receipt Date: 20090911
  Transmission Date: 20100115
  Serious: Yes (Other)
  Sender: FDA-Public Use
  Company Number: US-ABBOTT-09P-163-0596900-00

PATIENT
  Sex: Female
  Weight: 54.48 kg

DRUGS (1)
  1. LUPRON DEPOT [Suspect]
     Indication: ENDOMETRIOSIS
     Route: 030
     Dates: start: 20090910, end: 20090910

REACTIONS (8)
  - ANXIETY [None]
  - CHEST DISCOMFORT [None]
  - DYSPHAGIA [None]
  - HEADACHE [None]
  - HEART RATE INCREASED [None]
  - HYPERVENTILATION [None]
  - PRURITUS [None]
  - RESPIRATORY DISORDER [None]
